FAERS Safety Report 4886845-2 (Version None)
Quarter: 2006Q1

REPORT INFORMATION
  Report Type: 
  Country: None (occurrence: None)
  Receive Date: 20060120
  Receipt Date: 20060118
  Transmission Date: 20060701
  Serious: Yes (Life-Threatening)
  Sender: FDA-Public Use
  Company Number: GR-ABBOTT-06P-066-0322764-00

PATIENT
  Sex: Female
  Weight: 80 kg

DRUGS (15)
  1. HUMIRA [Suspect]
     Indication: RHEUMATOID ARTHRITIS
     Route: 058
     Dates: end: 20050528
  2. CALCIORAL [Concomitant]
     Indication: OSTEOPOROSIS
     Route: 048
     Dates: start: 20010101
  3. CALCIORAL [Concomitant]
     Indication: RHEUMATOID ARTHRITIS
  4. ALFACALCIDOL [Concomitant]
     Indication: OSTEOPOROSIS
     Route: 048
     Dates: start: 20010101
  5. RISEDRONATE SODIUM [Concomitant]
     Indication: OSTEOPOROSIS
     Route: 048
     Dates: start: 20010101
  6. BUDESONIDE [Concomitant]
     Indication: ASTHMA
     Route: 055
  7. BUDESONIDE [Concomitant]
     Indication: BRONCHITIS
  8. TERBUTALINE SULFATE [Concomitant]
     Indication: ASTHMA
     Route: 055
  9. PREDNISOLONE [Concomitant]
     Indication: RHEUMATOID ARTHRITIS
     Route: 048
     Dates: end: 20030610
  10. PREDNISOLONE [Concomitant]
     Route: 048
     Dates: start: 20030611, end: 20030616
  11. PREDNISOLONE [Concomitant]
     Route: 048
     Dates: start: 20030717
  12. PREDNISOLONE [Concomitant]
     Dates: start: 20050717
  13. CYCLOSPORINE [Concomitant]
     Indication: RHEUMATOID ARTHRITIS
     Dates: end: 20030413
  14. BREVA [Concomitant]
     Indication: BRONCHITIS
     Dosage: 10.5+2.6MG/2.5 ML
     Dates: start: 20040101
  15. KARVEA HCT [Concomitant]
     Indication: HYPERTENSION
     Dates: start: 20050301

REACTIONS (1)
  - CHRONIC LYMPHOCYTIC LEUKAEMIA [None]
